FAERS Safety Report 4373077-X (Version None)
Quarter: 2004Q2

REPORT INFORMATION
  Report Type: 
  Country: None (occurrence: None)
  Receive Date: 20040526
  Receipt Date: 20040511
  Transmission Date: 20050107
  Serious: Yes (Death)
  Sender: FDA-Public Use
  Company Number: 205102

PATIENT
  Age: 82 Year
  Sex: Female

DRUGS (7)
  1. RITUXIMAB CONC FOR SOLUTION FOR INFUSION [Suspect]
     Indication: LYMPHOMA
     Dosage: 500 MG
     Dates: start: 20031211, end: 20031211
  2. RITUXIMAB CONC FOR SOLUTION FOR INFUSION [Suspect]
     Indication: LYMPHOMA
     Dosage: 500 MG
     Dates: start: 20040108, end: 20040108
  3. RITUXIMAB CONC FOR SOLUTION FOR INFUSION [Suspect]
     Indication: LYMPHOMA
     Dosage: 500 MG
     Dates: start: 20040129, end: 20040129
  4. PIRARUBICIN (PIRARUBICIN) [Concomitant]
  5. CYCLOPHOSPHAMIDE [Concomitant]
  6. VINDESINE SULFTE (VINDESINE SULFATE) [Concomitant]
  7. PREDNISOLONED (PREDNISOLONE) [Concomitant]

REACTIONS (17)
  - ACUTE RESPIRATORY DISTRESS SYNDROME [None]
  - APNOEA [None]
  - BONE MARROW DEPRESSION [None]
  - CARDIAC ARREST [None]
  - CHEST X-RAY ABNORMAL [None]
  - DEPRESSED LEVEL OF CONSCIOUSNESS [None]
  - DYSPNOEA [None]
  - FUNGAL INFECTION [None]
  - GASTROINTESTINAL HAEMORRHAGE [None]
  - HEART RATE DECREASED [None]
  - LUNG INFILTRATION [None]
  - LYMPHOMA [None]
  - MALIGNANT NEOPLASM PROGRESSION [None]
  - PANCYTOPENIA [None]
  - RESPIRATORY DISORDER [None]
  - SHOCK HAEMORRHAGIC [None]
  - VIRAL INFECTION [None]
